FAERS Safety Report 18224986 (Version 1)
Quarter: 2020Q3

REPORT INFORMATION
  Report Type: Spontaneous
  Country: US (occurrence: US)
  Receive Date: 20200902
  Receipt Date: 20200902
  Transmission Date: 20201103
  Serious: Yes (Other)
  Sender: FDA-Public Use
  Company Number: US-BAXTER-2020BAX017527

PATIENT
  Sex: Female

DRUGS (3)
  1. CEFTAZIDIME. [Concomitant]
     Active Substance: CEFTAZIDIME
     Indication: ENDOPHTHALMITIS
     Dosage: INTRAVITREAL INJECTION
     Route: 050
  2. GENTAMICIN SULFATE IN 0.9% SODIUM CHLORIDE INJECTION [Suspect]
     Active Substance: GENTAMICIN SULFATE
     Indication: ENDOPHTHALMITIS
     Dosage: INTRAVITREAL INJECTION
     Route: 050
  3. VANCOMYCIN INJECTION, USP [Suspect]
     Active Substance: VANCOMYCIN
     Indication: ENDOPHTHALMITIS
     Dosage: INTRAVITREAL INJECTION
     Route: 050

REACTIONS (1)
  - Eye infarction [Unknown]
